FAERS Safety Report 8382925-8 (Version None)
Quarter: 2012Q2

REPORT INFORMATION
  Report Type: 
  Country: None (occurrence: None)
  Receive Date: 20120524
  Receipt Date: 20120510
  Transmission Date: 20120825
  Serious: Yes (Hospitalization)
  Sender: FDA-Public Use
  Company Number: DK-PFIZER INC-2012096886

PATIENT
  Age: 69 Year
  Sex: Female
  Weight: 68 kg

DRUGS (2)
  1. ETODOLAC [Suspect]
     Indication: OSTEOARTHRITIS
     Dosage: 200 MG, 2X/DAY
     Dates: start: 20100902
  2. NO SUBJECT DRUG [Suspect]
     Indication: OSTEOARTHRITIS
     Dosage: NO DOSE GIVEN
     Route: 048
     Dates: start: 20100902

REACTIONS (1)
  - BREAST CANCER FEMALE [None]
